FAERS Safety Report 9286380 (Version 3)
Quarter: 2014Q4

REPORT INFORMATION
  Report Type: Spontaneous
  Country: US (occurrence: US)
  Receive Date: 20130513
  Receipt Date: 20141117
  Transmission Date: 20150529
  Serious: Yes (Life-Threatening, Hospitalization, Other)
  Sender: FDA-Public Use
  Company Number: US-BAYER-2013-058255

PATIENT
  Age: 34 Year
  Sex: Female
  Weight: 128.35 kg

DRUGS (6)
  1. LUPRON [Concomitant]
     Active Substance: LEUPROLIDE ACETATE
  2. TORADOL [Concomitant]
     Active Substance: KETOROLAC TROMETHAMINE
  3. ALEVE [Concomitant]
     Active Substance: NAPROXEN SODIUM
     Indication: ABDOMINAL PAIN
  4. ZOFRAN [Concomitant]
     Active Substance: ONDANSETRON HYDROCHLORIDE
  5. YAZ [Suspect]
     Active Substance: DROSPIRENONE\ETHINYL ESTRADIOL
     Indication: PREMENSTRUAL DYSPHORIC DISORDER
     Dosage: UNK
     Dates: start: 20080617
  6. YAZ [Suspect]
     Active Substance: DROSPIRENONE\ETHINYL ESTRADIOL
     Indication: PREMENSTRUAL SYNDROME

REACTIONS (13)
  - Pain [Recovered/Resolved]
  - Pulmonary embolism [None]
  - Pelvic venous thrombosis [None]
  - Thrombosis [None]
  - Pain [None]
  - Injury [Recovered/Resolved]
  - Emotional distress [None]
  - Peripheral swelling [Recovered/Resolved]
  - General physical health deterioration [Recovered/Resolved]
  - Abdominal pain [None]
  - Thrombophlebitis superficial [None]
  - Deep vein thrombosis [Recovered/Resolved]
  - Anxiety [None]

NARRATIVE: CASE EVENT DATE: 200806
